FAERS Safety Report 4287709-8 (Version None)
Quarter: 2004Q1

REPORT INFORMATION
  Report Type: 
  Country: None (occurrence: None)
  Receive Date: 20040209
  Receipt Date: 20030905
  Transmission Date: 20041129
  Serious: No
  Sender: FDA-Public Use
  Company Number: US-GLAXOSMITHKLINE-A0424788A

PATIENT
  Sex: Male

DRUGS (2)
  1. PAXIL CR [Suspect]
     Indication: ANXIETY
     Dates: start: 20030101
  2. PAXIL [Suspect]
     Indication: ANXIETY
     Dates: start: 20010101

REACTIONS (5)
  - DRUG INEFFECTIVE [None]
  - FLIGHT OF IDEAS [None]
  - INITIAL INSOMNIA [None]
  - PANIC REACTION [None]
  - SLEEP DISORDER [None]
